FAERS Safety Report 4391733-4 (Version None)
Quarter: 2004Q3

REPORT INFORMATION
  Report Type: 
  Country: None (occurrence: None)
  Receive Date: 20040702
  Receipt Date: 20040430
  Transmission Date: 20050211
  Serious: Yes (Other)
  Sender: FDA-Public Use
  Company Number: 2004UW08827

PATIENT
  Age: 69 Year
  Sex: Male

DRUGS (6)
  1. CRESTOR [Suspect]
     Indication: BLOOD CHOLESTEROL INCREASED
     Dosage: 5 MG DAILY PO
     Route: 048
     Dates: start: 20040121, end: 20040401
  2. CRESTOR [Suspect]
     Indication: BLOOD TRIGLYCERIDES INCREASED
     Dosage: 5 MG DAILY PO
     Route: 048
     Dates: start: 20040121, end: 20040401
  3. ACTOS [Suspect]
     Dosage: 15 MG DAILY
     Dates: start: 20040325, end: 20040401
  4. ZETIA [Concomitant]
  5. TRICOR [Concomitant]
  6. NIASPAN [Concomitant]

REACTIONS (2)
  - DRUG INTERACTION [None]
  - MYOSITIS [None]
